FAERS Safety Report 23684067 (Version 2)
Quarter: 2024Q2

REPORT INFORMATION
  Report Type: Report from Study
  Country: US (occurrence: US)
  Receive Date: 20240328
  Receipt Date: 20240404
  Transmission Date: 20240716
  Serious: Yes (Life-Threatening)
  Sender: FDA-Public Use
  Company Number: US-MYLANLABS-2024M1025530

PATIENT
  Age: 0 Year
  Sex: Male
  Weight: 1.53 kg

DRUGS (45)
  1. SILDENAFIL [Suspect]
     Active Substance: SILDENAFIL
     Indication: Bronchopulmonary dysplasia
     Dosage: 0.25 MILLIGRAM/KILOGRAM, BID
     Route: 065
     Dates: start: 20240227, end: 20240312
  2. SILDENAFIL [Suspect]
     Active Substance: SILDENAFIL
     Dosage: 3.2 MILLIGRAM
     Route: 042
     Dates: start: 20240229, end: 20240301
  3. SILDENAFIL [Suspect]
     Active Substance: SILDENAFIL
     Dosage: 0.84 MILLIGRAM
     Route: 065
     Dates: start: 20240302, end: 20240302
  4. SILDENAFIL [Suspect]
     Active Substance: SILDENAFIL
     Dosage: 2.56 MILLIGRAM
     Route: 042
     Dates: start: 20240302, end: 20240303
  5. SILDENAFIL [Suspect]
     Active Substance: SILDENAFIL
     Dosage: 1.28 MILLIGRAM
     Route: 065
     Dates: start: 20240302, end: 20240304
  6. SILDENAFIL [Suspect]
     Active Substance: SILDENAFIL
     Dosage: 3.36 MILLIGRAM
     Route: 042
     Dates: start: 20240304, end: 20240305
  7. SILDENAFIL [Suspect]
     Active Substance: SILDENAFIL
     Dosage: 1.68 MILLIGRAM
     Route: 042
     Dates: start: 20240305, end: 20240306
  8. SILDENAFIL [Suspect]
     Active Substance: SILDENAFIL
     Dosage: 4.2 MILLIGRAM, QD
     Route: 042
     Dates: start: 20240306, end: 20240307
  9. SILDENAFIL [Suspect]
     Active Substance: SILDENAFIL
     Dosage: 2 MILLIGRAM
     Route: 042
     Dates: start: 20240307, end: 20240308
  10. SILDENAFIL [Suspect]
     Active Substance: SILDENAFIL
     Dosage: 2 MILLIGRAM, BID
     Route: 065
     Dates: start: 20240307, end: 20240308
  11. SILDENAFIL [Suspect]
     Active Substance: SILDENAFIL
     Dosage: 2.56 MILLIGRAM, BID
     Route: 065
     Dates: start: 20240308, end: 20240310
  12. SILDENAFIL [Suspect]
     Active Substance: SILDENAFIL
     Dosage: 5.12 MILLIGRAM
     Route: 042
     Dates: start: 20240308, end: 20240310
  13. SILDENAFIL [Suspect]
     Active Substance: SILDENAFIL
     Dosage: 5.92 MILLIGRAM
     Route: 042
     Dates: start: 20240310, end: 20240312
  14. SILDENAFIL [Suspect]
     Active Substance: SILDENAFIL
     Dosage: 3.444 MILLIGRAM
     Route: 042
     Dates: start: 20240312
  15. SILDENAFIL [Suspect]
     Active Substance: SILDENAFIL
     Dosage: 3.444 MILLIGRAM, BID
     Route: 065
     Dates: start: 20240312
  16. SILDENAFIL [Suspect]
     Active Substance: SILDENAFIL
     Indication: Bronchopulmonary dysplasia
     Dosage: 0.384 MILLIGRAM, BID
     Route: 065
     Dates: start: 20240227, end: 20240229
  17. SILDENAFIL [Suspect]
     Active Substance: SILDENAFIL
     Dosage: 0.25 MILLIGRAM/KILOGRAM, BID
     Route: 065
     Dates: start: 20240227, end: 20240229
  18. SILDENAFIL [Suspect]
     Active Substance: SILDENAFIL
     Dosage: 1.6 MILLIGRAM, BID
     Route: 065
     Dates: start: 20240229, end: 20240302
  19. SILDENAFIL [Suspect]
     Active Substance: SILDENAFIL
     Dosage: 0.84 MILLIGRAM, QD
     Route: 065
     Dates: start: 20240302, end: 20240302
  20. SILDENAFIL [Suspect]
     Active Substance: SILDENAFIL
     Dosage: 1.28 MILLIGRAM
     Route: 065
     Dates: start: 20240302, end: 20240304
  21. SILDENAFIL [Suspect]
     Active Substance: SILDENAFIL
     Dosage: 1.68 MILLIGRAM
     Route: 065
     Dates: start: 20240304, end: 20240305
  22. SILDENAFIL [Suspect]
     Active Substance: SILDENAFIL
     Dosage: 4.2 MILLIGRAM, QD
     Route: 065
     Dates: start: 20240305
  23. SILDENAFIL [Suspect]
     Active Substance: SILDENAFIL
     Dosage: 1.68 MILLIGRAM, BID
     Route: 065
     Dates: start: 20240305, end: 20240306
  24. SILDENAFIL [Suspect]
     Active Substance: SILDENAFIL
     Dosage: 4.2 MILLIGRAM, BID
     Route: 065
     Dates: start: 20240306, end: 20240307
  25. SILDENAFIL [Suspect]
     Active Substance: SILDENAFIL
     Dosage: 2 MILLIGRAM, BID
     Route: 065
     Dates: start: 20240307, end: 20240308
  26. SILDENAFIL [Suspect]
     Active Substance: SILDENAFIL
     Dosage: 2.56 MILLIGRAM, BID
     Route: 065
     Dates: start: 20240308, end: 20240310
  27. SILDENAFIL [Suspect]
     Active Substance: SILDENAFIL
     Dosage: 2.96 MILLIGRAM, BID
     Route: 065
     Dates: start: 20240310, end: 20240312
  28. SILDENAFIL [Suspect]
     Active Substance: SILDENAFIL
     Dosage: 3.44 MILLIGRAM, BID
     Route: 065
     Dates: start: 20240312
  29. FERROUS SULFATE [Concomitant]
     Active Substance: FERROUS SULFATE
     Dosage: 6.56 MILLIGRAM, QD
     Route: 065
     Dates: start: 20240301
  30. DEXAMETHASONE [Concomitant]
     Active Substance: DEXAMETHASONE
     Dosage: 0.132 MILLIGRAM, BID
     Route: 065
     Dates: start: 20240305, end: 20240307
  31. DEXAMETHASONE [Concomitant]
     Active Substance: DEXAMETHASONE
     Dosage: 0.3 MILLILITRE PER KILOGRAM, BID
     Route: 042
     Dates: start: 20240307, end: 20240307
  32. DEXAMETHASONE [Concomitant]
     Active Substance: DEXAMETHASONE
     Dosage: 0.08 MILLIGRAM, BID
     Route: 042
     Dates: start: 20240308
  33. METHADONE [Concomitant]
     Active Substance: METHADONE HYDROCHLORIDE
     Indication: Drug withdrawal syndrome
     Dosage: 0.16 MILLIGRAM, Q6H (1 IN 6 HOURS)
     Route: 065
     Dates: start: 20240306
  34. Poly vi sol [Concomitant]
     Indication: Vitamin supplementation
     Dosage: 0.5 MILLILITER, BID
     Route: 065
     Dates: start: 20240301
  35. FENTANYL [Concomitant]
     Active Substance: FENTANYL\FENTANYL CITRATE
     Indication: Breakthrough pain
     Dosage: 3.5 MILLIGRAM, QD
     Route: 042
     Dates: start: 20240307, end: 20240307
  36. FENTANYL [Concomitant]
     Active Substance: FENTANYL\FENTANYL CITRATE
     Indication: Sedation
     Dosage: 1.5 MICROGRAM
     Route: 042
     Dates: start: 20240308, end: 20240308
  37. DEXMEDETOMIDINE [Concomitant]
     Active Substance: DEXMEDETOMIDINE
     Indication: Sedation
     Dosage: 1 MICROMOLE PER KILOGRAM
     Route: 042
     Dates: start: 20240226
  38. GLYCERIN [Concomitant]
     Active Substance: GLYCERIN
     Indication: Constipation
     Dosage: 0.5 GRAM
     Route: 054
     Dates: start: 20240209
  39. HYDRALAZINE [Concomitant]
     Active Substance: HYDRALAZINE HYDROCHLORIDE
     Indication: Blood pressure increased
     Dosage: 0.2 MILLIGRAM
     Route: 042
     Dates: start: 20240307
  40. MIDAZOLAM [Concomitant]
     Active Substance: MIDAZOLAM
     Indication: Sedation
     Dosage: 0.15 MILLIGRAM, QD
     Route: 042
     Dates: start: 20240308, end: 20240308
  41. FUROSEMIDE [Concomitant]
     Active Substance: FUROSEMIDE
     Indication: Chronic respiratory disease
     Dosage: 1.7 MILLIGRAM, QD
     Route: 042
     Dates: start: 20240308, end: 20240308
  42. CHLOROTHIAZIDE [Concomitant]
     Active Substance: CHLOROTHIAZIDE
     Indication: Chronic respiratory disease
     Dosage: 17.5 MILLIGRAM, QD
     Route: 065
     Dates: start: 20240306
  43. SPIRONOLACTONE [Concomitant]
     Active Substance: SPIRONOLACTONE
     Indication: Chronic respiratory disease
     Dosage: 3.5 MILLIGRAM, QD
     Route: 065
     Dates: start: 20240306
  44. BUMETANIDE [Concomitant]
     Active Substance: BUMETANIDE
     Dosage: UNK
     Route: 065
  45. HYDROCHLOROTHIAZIDE [Concomitant]
     Active Substance: HYDROCHLOROTHIAZIDE
     Dosage: UNK
     Route: 065

REACTIONS (2)
  - Incarcerated inguinal hernia [Recovered/Resolved]
  - Off label use [Unknown]

NARRATIVE: CASE EVENT DATE: 20240227
